FAERS Safety Report 13027083 (Version 1)
Quarter: 2016Q4

REPORT INFORMATION
  Report Type: Spontaneous
  Country: US (occurrence: US)
  Receive Date: 20161214
  Receipt Date: 20161214
  Transmission Date: 20170207
  Serious: Yes (Hospitalization)
  Sender: FDA-Public Use
  Company Number: None

PATIENT
  Age: 68 Year
  Sex: Female
  Weight: 81.7 kg

DRUGS (1)
  1. MEMANTINE HYDROCHLORIDE. [Suspect]
     Active Substance: MEMANTINE HYDROCHLORIDE
     Dates: end: 20161130

REACTIONS (5)
  - Pneumonia [None]
  - Pleural effusion [None]
  - Metastases to central nervous system [None]
  - Therapy cessation [None]
  - Non-small cell lung cancer metastatic [None]

NARRATIVE: CASE EVENT DATE: 20161116
